FAERS Safety Report 6463971-8 (Version None)
Quarter: 2009Q4

REPORT INFORMATION
  Report Type: 
  Country: None (occurrence: None)
  Receive Date: 20091110
  Receipt Date: 20091008
  Transmission Date: 20100525
  Serious: No
  Sender: FDA-Public Use
  Company Number: 1000009356

PATIENT
  Age: 45 Year
  Sex: Male

DRUGS (1)
  1. SAVELLA [Suspect]
     Indication: CHRONIC FATIGUE SYNDROME
     Dosage: 12.5 MG (12.5 MG, 1 IN 1 D), ORAL
     Route: 048
     Dates: start: 20090901, end: 20090901

REACTIONS (1)
  - URINARY HESITATION [None]
